FAERS Safety Report 5814387-6 (Version None)
Quarter: 2008Q3

REPORT INFORMATION
  Report Type: 
  Country: None (occurrence: None)
  Receive Date: 20080718
  Receipt Date: 20080713
  Transmission Date: 20090109
  Serious: Yes (Hospitalization)
  Sender: FDA-Public Use
  Company Number: US-BAYER-200820366NA

PATIENT
  Age: 64 Year
  Sex: Female

DRUGS (1)
  1. LEUKINE [Suspect]
     Indication: BREAST CANCER
     Route: 058
     Dates: start: 20080127, end: 20080127

REACTIONS (1)
  - SYNCOPE [None]
